FAERS Safety Report 11240282 (Version 1)
Quarter: 2015Q3

REPORT INFORMATION
  Report Type: Spontaneous
  Country: US (occurrence: None)
  Receive Date: 20150701
  Receipt Date: 20150701
  Transmission Date: 20151125
  Serious: Yes (Life-Threatening, Hospitalization)
  Sender: FDA-Public Use
  Company Number: None

PATIENT
  Age: 31 Year
  Sex: Male
  Weight: 79.5 kg

DRUGS (1)
  1. SULFAMETHOXAZOLE/TRIMETHOPRIM [Suspect]
     Active Substance: SULFAMETHOXAZOLE\TRIMETHOPRIM
     Route: 048
     Dates: start: 20130522, end: 20130602

REACTIONS (9)
  - Urticaria [None]
  - Pruritus generalised [None]
  - Hypokalaemia [None]
  - Alanine aminotransferase increased [None]
  - Pruritus [None]
  - Hepatic enzyme increased [None]
  - Rash [None]
  - Aspartate aminotransferase increased [None]
  - Back pain [None]

NARRATIVE: CASE EVENT DATE: 20130602
